FAERS Safety Report 11171220 (Version 1)
Quarter: 2015Q2

REPORT INFORMATION
  Report Type: Spontaneous
  Country: US (occurrence: None)
  Receive Date: 20150605
  Receipt Date: 20150605
  Transmission Date: 20150821
  Serious: No
  Sender: FDA-Public Use
  Company Number: None

PATIENT
  Age: 58 Year
  Sex: Male
  Weight: 129.28 kg

DRUGS (9)
  1. CRESTOR [Concomitant]
     Active Substance: ROSUVASTATIN CALCIUM
  2. ALIGN [Concomitant]
     Active Substance: BIFIDOBACTERIUM LONGUM SUBSP. INFANTIS
  3. LINSIPRIL [Suspect]
     Active Substance: LISINOPRIL
  4. X-VIATE [Suspect]
     Active Substance: UREA
     Indication: DRY SKIN
     Dosage: 1X DAILY ONCE DAILY APPLIED TO A SURFACE USUALLY THE SKIN
     Route: 048
     Dates: start: 20150428, end: 20150604
  5. OMEGA 3 [Concomitant]
     Active Substance: OMEGA-3 FATTY ACIDS
  6. D-3 [Concomitant]
     Active Substance: CHOLECALCIFEROL
  7. ASPIRIN. [Concomitant]
     Active Substance: ASPIRIN
  8. VITAMIN B COMPLEX [Concomitant]
     Active Substance: CYANOCOBALAMIN\DEXPANTHENOL\NIACINAMIDE\PYRIDOXINE HYDROCHLORIDE\RIBOFLAVIN 5^-PHOSPHATE SODIUM\THIAMINE HYDROCHLORIDE\VITAMIN B COMPLEX
  9. TERAZON [Concomitant]

REACTIONS (3)
  - Blister [None]
  - Exposure via direct contact [None]
  - Skin irritation [None]

NARRATIVE: CASE EVENT DATE: 20150523
